FAERS Safety Report 23962180 (Version 4)
Quarter: 2024Q4

REPORT INFORMATION
  Report Type: Report from Study
  Country: AU (occurrence: AU)
  Receive Date: 20240611
  Receipt Date: 20241021
  Transmission Date: 20250115
  Serious: No
  Sender: ROCHE
  Company Number: AU-ROCHE-3473527

PATIENT
  Age: 71 Year
  Sex: Male
  Weight: 90.0 kg

DRUGS (2)
  1. ZELBORAF [Suspect]
     Active Substance: VEMURAFENIB
     Indication: Craniopharyngioma
     Dosage: ZELBORAF 4 WEEKLY? FREQUENCY TEXT:4 WEEKLY
     Route: 048
  2. COTELLIC [Suspect]
     Active Substance: COBIMETINIB
     Indication: Craniopharyngioma
     Route: 048

REACTIONS (4)
  - Off label use [Unknown]
  - Lethargy [Unknown]
  - Diarrhoea [Unknown]
  - Sensitive skin [Unknown]
